FAERS Safety Report 13361182 (Version 2)
Quarter: 2017Q3

REPORT INFORMATION
  Report Type: Spontaneous
  Country: US (occurrence: US)
  Receive Date: 20170322
  Receipt Date: 20170718
  Transmission Date: 20171127
  Serious: No
  Sender: FDA-Public Use
  Company Number: US-009507513-1703USA000437

PATIENT
  Age: 22 Year
  Sex: Female
  Weight: 39.91 kg

DRUGS (1)
  1. NEXPLANON [Suspect]
     Active Substance: ETONOGESTREL
     Indication: CONTRACEPTION
     Dosage: 1 ROD
     Route: 059
     Dates: start: 20140728

REACTIONS (9)
  - Device deployment issue [Not Recovered/Not Resolved]
  - Headache [Not Recovered/Not Resolved]
  - Migration of implanted drug [Not Recovered/Not Resolved]
  - Device difficult to use [Not Recovered/Not Resolved]
  - Breast pain [Not Recovered/Not Resolved]
  - Complication associated with device [Recovered/Resolved]
  - Movement disorder [Not Recovered/Not Resolved]
  - Vaginal haemorrhage [Not Recovered/Not Resolved]
  - Pain in extremity [Not Recovered/Not Resolved]

NARRATIVE: CASE EVENT DATE: 20170228
